FAERS Safety Report 5552440-5 (Version None)
Quarter: 2007Q4

REPORT INFORMATION
  Report Type: 
  Country: None (occurrence: None)
  Receive Date: 20071205
  Receipt Date: 20071129
  Transmission Date: 20080405
  Serious: Yes (Hospitalization)
  Sender: FDA-Public Use
  Company Number: CHPA2007US13003

PATIENT
  Age: 64 Year
  Sex: Male

DRUGS (3)
  1. MAALOX ANTACID/ANTIGAS MAX QDTABS ASST (NCH) (CALCIUM CARBONATE, SIMET [Suspect]
     Indication: DYSPEPSIA
     Dosage: 2 DF,ORAL
     Route: 048
     Dates: start: 20071121
  2. ANTIHYPERTENSIVE DRUGS (NO INGREDIENTS/SUBSTANCES) [Concomitant]
  3. DRUG THERAPY NOS (DRUG THERAPY NOS) [Concomitant]

REACTIONS (2)
  - ANAPHYLACTIC SHOCK [None]
  - BLISTER [None]
